FAERS Safety Report 6496232-1 (Version None)
Quarter: 2009Q4

REPORT INFORMATION
  Report Type: 
  Country: None (occurrence: None)
  Receive Date: 20091214
  Receipt Date: 20091029
  Transmission Date: 20100525
  Serious: No
  Sender: FDA-Public Use
  Company Number: US-BRISTOL-MYERS SQUIBB COMPANY-14835896

PATIENT
  Age: 30 Year
  Sex: Male

DRUGS (2)
  1. ABILIFY [Suspect]
     Indication: PSYCHOTIC DISORDER
     Dosage: DOSE INCREASED TO 30 MG
  2. PROZAC [Concomitant]

REACTIONS (2)
  - DYSKINESIA [None]
  - INCREASED APPETITE [None]
